FAERS Safety Report 5867312-6 (Version None)
Quarter: 2008Q3

REPORT INFORMATION
  Report Type: 
  Country: None (occurrence: None)
  Receive Date: 20080829
  Receipt Date: 20080829
  Transmission Date: 20090109
  Serious: Yes (Hospitalization)
  Sender: FDA-Public Use
  Company Number: None

PATIENT
  Age: 50 Year
  Sex: Male

DRUGS (1)
  1. ENALAPRIL MALEATE [Suspect]
     Dosage: 20 MG BID PO
     Route: 048
     Dates: start: 20030328, end: 20080818

REACTIONS (5)
  - ANGIOEDEMA [None]
  - DYSPHAGIA [None]
  - LOCAL SWELLING [None]
  - SWOLLEN TONGUE [None]
  - TONGUE BITING [None]
